FAERS Safety Report 7366340-1 (Version None)
Quarter: 2011Q1

REPORT INFORMATION
  Report Type: 
  Country: None (occurrence: None)
  Receive Date: 20110304
  Receipt Date: 20110223
  Transmission Date: 20110831
  Serious: Yes (Other)
  Sender: FDA-Public Use
  Company Number: 2011SP008748

PATIENT
  Age: 30 Year
  Sex: Male

DRUGS (3)
  1. REFLEX (MIRTAZAPINE /01293201/) [Suspect]
     Indication: DEPRESSION
     Dosage: (15 MG; QD; PO) (30 MG; QD; PO) (15 MG; QD; PO)
     Route: 048
  2. SERTRALINE HYDROCHLORIDE [Concomitant]
  3. HYDROCHLORIDE [Concomitant]

REACTIONS (1)
  - AGGRESSION [None]
